FAERS Safety Report 8106051-8 (Version None)
Quarter: 2012Q1

REPORT INFORMATION
  Report Type: 
  Country: None (occurrence: None)
  Receive Date: 20120202
  Receipt Date: 20120121
  Transmission Date: 20120608
  Serious: Yes (Hospitalization, Other)
  Sender: FDA-Public Use
  Company Number: CN-ACCORD-012206

PATIENT
  Age: 45 Year
  Sex: Male

DRUGS (5)
  1. CEFOPERAZONE W/SULBACTAM [Concomitant]
     Indication: PROPHYLAXIS
     Dosage: FOR A PERIOD OF TWO WEEKS
  2. COTRIM [Suspect]
     Dosage: TRIMETHOPRIM 160 MG AND SULFAMETHOXAZOLE 800 MG
     Route: 048
  3. METHYLPREDNISOLONE [Concomitant]
     Indication: IMMUNOSUPPRESSION
     Dosage: ONLY USED DURING OPERATION
     Route: 042
  4. MYCOPHENOLATE MOFETIL [Suspect]
     Indication: IMMUNOSUPPRESSION
     Route: 048
  5. TACROLIMUS [Suspect]
     Indication: IMMUNOSUPPRESSION
     Dosage: 1 MG 12 HOURLY DAILY + CONCENTRATION BETWEEN 8 TO 10 NG/ML, THEN DOSE INCREASED TO 15 NG/ML
     Route: 048

REACTIONS (2)
  - DRUG INEFFECTIVE [None]
  - NOCARDIOSIS [None]
